FAERS Safety Report 7049664-7 (Version None)
Quarter: 2010Q4

REPORT INFORMATION
  Report Type: 
  Country: None (occurrence: None)
  Receive Date: 20101018
  Receipt Date: 20101005
  Transmission Date: 20110411
  Serious: Yes (Congenital Anomaly)
  Sender: FDA-Public Use
  Company Number: A0886815A

PATIENT
  Sex: Female
  Weight: 3.3 kg

DRUGS (5)
  1. PAXIL [Suspect]
     Indication: PRODUCT USED FOR UNKNOWN INDICATION
  2. NPH INSULIN [Concomitant]
  3. PRENATAL VITAMINS [Concomitant]
  4. REGLAN [Concomitant]
  5. REGULAR INSULIN [Concomitant]

REACTIONS (5)
  - CARDIAC MURMUR [None]
  - CONGENITAL ANOMALY [None]
  - DRUG EXPOSURE DURING PREGNANCY [None]
  - ECG SIGNS OF VENTRICULAR HYPERTROPHY [None]
  - ESSENTIAL HYPERTENSION [None]
